FAERS Safety Report 6878088-8 (Version None)
Quarter: 2010Q2

REPORT INFORMATION
  Report Type: 
  Country: None (occurrence: None)
  Receive Date: 20100616
  Receipt Date: 20100225
  Transmission Date: 20101027
  Serious: No
  Sender: FDA-Public Use
  Company Number: DSA_42691_2010

PATIENT
  Sex: Male

DRUGS (13)
  1. XENAZINE [Suspect]
     Indication: HUNTINGTON'S CHOREA
     Dosage: (12.5 MG QD ORAL), (12.5 MG BID ORAL)
     Route: 048
     Dates: start: 20100219, end: 20100225
  2. XENAZINE [Suspect]
     Indication: HUNTINGTON'S CHOREA
     Dosage: (12.5 MG QD ORAL), (12.5 MG BID ORAL)
     Route: 048
     Dates: start: 20100226
  3. ACTOS [Concomitant]
  4. ASPIRIN [Concomitant]
  5. METOPROLOL TARTRATE [Concomitant]
  6. SIMVASTATIN [Concomitant]
  7. PAROXETINE HCL [Concomitant]
  8. JANUVIA [Concomitant]
  9. GLIPIZIDE [Concomitant]
  10. LISINOPRIL [Concomitant]
  11. VITAMIN D [Concomitant]
  12. IRON [Concomitant]
  13. MULTI-VITAMINS [Concomitant]

REACTIONS (3)
  - DRUG INEFFECTIVE [None]
  - FEELING HOT [None]
  - PRODUCT QUALITY ISSUE [None]
